FAERS Safety Report 9275165 (Version 1)
Quarter: 2013Q2

REPORT INFORMATION
  Report Type: Report from Study
  Country: LB (occurrence: LB)
  Receive Date: 20130507
  Receipt Date: 20130507
  Transmission Date: 20140414
  Serious: Yes (Death)
  Sender: FDA-Public Use
  Company Number: LB-SANOFI-AVENTIS-2013SA043766

PATIENT
  Age: 80 Year
  Sex: Female

DRUGS (9)
  1. INSULIN GLARGINE [Suspect]
     Indication: DIABETES MELLITUS
     Dosage: DOSE:10 UNIT(S)
     Route: 065
     Dates: start: 20130101
  2. SOLOSTAR [Suspect]
     Indication: DEVICE THERAPY
     Dates: start: 20130101
  3. ONGLYZA [Concomitant]
     Route: 048
  4. OMEPRAZOLE [Concomitant]
     Route: 048
  5. PRAXILENE [Concomitant]
     Route: 048
  6. NEFAZAN [Concomitant]
     Route: 048
  7. TRENTAL [Concomitant]
     Route: 048
  8. LISOPRESS [Concomitant]
     Route: 048
  9. CYNT [Concomitant]
     Route: 048

REACTIONS (2)
  - Oedema [Fatal]
  - General physical health deterioration [Fatal]
